FAERS Safety Report 11983392 (Version 2)
Quarter: 2016Q3

REPORT INFORMATION
  Report Type: Report from Study
  Country: BR (occurrence: BR)
  Receive Date: 20160201
  Receipt Date: 20160726
  Transmission Date: 20161109
  Serious: Yes (Other)
  Sender: FDA-Public Use
  Company Number: BR-ABBVIE-16K-020-1545845-00

PATIENT
  Age: 56 Year
  Sex: Female
  Weight: 69 kg

DRUGS (14)
  1. HUMIRA [Suspect]
     Active Substance: ADALIMUMAB
     Indication: RHEUMATOID ARTHRITIS
     Route: 058
     Dates: start: 20090101, end: 20151221
  2. SIMVASTATIN. [Concomitant]
     Active Substance: SIMVASTATIN
     Indication: BLOOD CHOLESTEROL ABNORMAL
     Route: 048
     Dates: start: 2010
  3. SULFASALAZINE. [Concomitant]
     Active Substance: SULFASALAZINE
     Indication: RHEUMATIC DISORDER
     Route: 048
     Dates: start: 2005
  4. CODEINE [Concomitant]
     Active Substance: CODEINE
     Route: 048
     Dates: start: 201504, end: 201606
  5. AMITRIPTYLINE [Concomitant]
     Active Substance: AMITRIPTYLINE
     Indication: FIBROMYALGIA
     Route: 048
     Dates: start: 2008
  6. ALENDRONATE [Concomitant]
     Active Substance: ALENDRONATE SODIUM
     Indication: BONE DISORDER
     Route: 048
     Dates: start: 2004
  7. OMEPRAZOLE. [Concomitant]
     Active Substance: OMEPRAZOLE
     Indication: GASTRIC DISORDER
     Route: 048
  8. HUMIRA [Suspect]
     Active Substance: ADALIMUMAB
     Route: 058
  9. DIAZEPAM. [Concomitant]
     Active Substance: DIAZEPAM
     Indication: PAIN
     Route: 048
     Dates: start: 2008, end: 201605
  10. VITAMIN D/CALCIUM [Concomitant]
     Active Substance: CALCIUM\VITAMIN D
     Indication: BONE DISORDER
     Route: 048
     Dates: start: 2004
  11. CODEINE [Concomitant]
     Active Substance: CODEINE
     Indication: SPINAL DISORDER
     Route: 048
     Dates: start: 201410
  12. INDAPAMIDE. [Concomitant]
     Active Substance: INDAPAMIDE
     Indication: HYPERTENSION
     Route: 048
  13. PREDNISONE. [Concomitant]
     Active Substance: PREDNISONE
     Indication: PAIN
     Route: 048
     Dates: start: 1999
  14. PROPRANOLOL [Concomitant]
     Active Substance: PROPRANOLOL\PROPRANOLOL HYDROCHLORIDE
     Indication: HYPERTENSION
     Route: 048

REACTIONS (5)
  - Spinal osteoarthritis [Recovered/Resolved]
  - Bone pain [Recovering/Resolving]
  - Sinusitis [Recovering/Resolving]
  - Bone pain [Not Recovered/Not Resolved]
  - Fall [Recovered/Resolved]

NARRATIVE: CASE EVENT DATE: 2010
